FAERS Safety Report 15607768 (Version 1)
Quarter: 2018Q4

REPORT INFORMATION
  Report Type: Spontaneous
  Country: CH (occurrence: CH)
  Receive Date: 20181112
  Receipt Date: 20181112
  Transmission Date: 20190205
  Serious: Yes (Hospitalization, Other)
  Sender: FDA-Public Use
  Company Number: CH-PFIZER INC-2018457819

PATIENT
  Age: 87 Year
  Sex: Female

DRUGS (16)
  1. CALCIMAGON D3 [Concomitant]
     Active Substance: CALCIUM\CHOLECALCIFEROL
     Dosage: UNK
  2. ASPIRIN CARDIO [Concomitant]
     Active Substance: ASPIRIN
     Dosage: UNK
  3. MAGNESIUM SULFATE. [Concomitant]
     Active Substance: MAGNESIUM SULFATE
     Dosage: UNK, SINGLE
     Dates: start: 20180922
  4. NEXIUM MUPS [ESOMEPRAZOLE MAGNESIUM] [Interacting]
     Active Substance: ESOMEPRAZOLE MAGNESIUM
     Dosage: 40 MG, 1X/DAY
     Route: 048
  5. TORASEMIDE [Concomitant]
     Active Substance: TORSEMIDE
     Dosage: 5 MG, 1X/DAY
     Dates: start: 201809
  6. NEBILET [Concomitant]
     Active Substance: NEBIVOLOL
     Dosage: UNK
  7. DIGOXINE [Concomitant]
     Active Substance: DIGOXIN
     Dosage: 0.5 MG, IN TOTAL
     Route: 042
     Dates: start: 20180923, end: 20180923
  8. XARELTO [Concomitant]
     Active Substance: RIVAROXABAN
     Dosage: UNK
     Dates: start: 20181013
  9. MG 5 - LONGORAL [Concomitant]
     Dosage: UNK
     Dates: start: 20180924
  10. ALDACTONE [Suspect]
     Active Substance: SPIRONOLACTONE
     Dosage: 25 MG, 1X/DAY
     Route: 048
  11. TORASEMIDE [Concomitant]
     Active Substance: TORSEMIDE
     Indication: OEDEMA PERIPHERAL
     Dosage: 2.5 MG, 1X/DAY
     Dates: end: 201809
  12. ATACAND [Concomitant]
     Active Substance: CANDESARTAN CILEXETIL
     Dosage: UNK
  13. DIGOXINE [Concomitant]
     Active Substance: DIGOXIN
     Dosage: 0.25 MG, 1X/DAY
     Route: 048
     Dates: start: 20180923, end: 201810
  14. VITAMIN B12 [HYDROXOCOBALAMIN] [Concomitant]
     Dosage: UNK
     Dates: start: 20180926
  15. KALIUM-R [Concomitant]
     Dosage: AS NEEDED
     Dates: start: 20180926, end: 20180928
  16. DAFALGAN [Concomitant]
     Active Substance: ACETAMINOPHEN
     Dosage: AS NEEDED
     Dates: start: 20180925

REACTIONS (10)
  - Drug interaction [Recovered/Resolved]
  - Hypomagnesaemia [Recovered/Resolved]
  - Vertigo [Recovering/Resolving]
  - Dysmetria [Unknown]
  - Blood potassium decreased [Unknown]
  - Nausea [Recovered/Resolved]
  - Nystagmus [Unknown]
  - Fall [Unknown]
  - Atrial fibrillation [Unknown]
  - Vomiting [Recovered/Resolved]

NARRATIVE: CASE EVENT DATE: 2018
